FAERS Safety Report 8300188-6 (Version None)
Quarter: 2012Q2

REPORT INFORMATION
  Report Type: 
  Country: None (occurrence: None)
  Receive Date: 20120417
  Receipt Date: 20120404
  Transmission Date: 20120825
  Serious: Yes (Other)
  Sender: FDA-Public Use
  Company Number: 2012-00610

PATIENT
  Age: 48 Year
  Sex: Female
  Weight: 54 kg

DRUGS (6)
  1. FELODIPINE [Concomitant]
  2. LOSARTAN POTASSIUM [Suspect]
     Indication: PRODUCT USED FOR UNKNOWN INDICATION
     Dosage: UNKNOWN (UNKNOWN, UNK), UNKNOWN
     Dates: start: 20120126
  3. DEXAMETHASONE + GLACIAL ACETIC ACID + NEOMYCIN SULPHATE (OTOMIZE) [Concomitant]
  4. CANDESARTAN CILEXETIL [Concomitant]
  5. ESTRADIOL [Concomitant]
  6. NORETHISTERONE (NORIDAY) [Concomitant]

REACTIONS (1)
  - SPIDER NAEVUS [None]
